FAERS Safety Report 8334896 (Version 4)
Quarter: 2013Q1

REPORT INFORMATION
  Report Type: Spontaneous
  Country: JP (occurrence: JP)
  Receive Date: 20120112
  Receipt Date: 20130312
  Transmission Date: 20140127
  Serious: Yes (Hospitalization)
  Sender: FDA-Public Use
  Company Number: JP-GLAXOSMITHKLINE-B0774551A

PATIENT
  Age: 30 Year
  Sex: Female

DRUGS (6)
  1. LAMICTAL [Suspect]
     Indication: BIPOLAR I DISORDER
     Dosage: 25MG ALTERNATE DAYS
     Route: 048
     Dates: start: 20111115, end: 20111128
  2. LAMICTAL [Suspect]
     Indication: BIPOLAR I DISORDER
     Dosage: 25MG PER DAY
     Route: 048
     Dates: start: 20111129, end: 20111215
  3. LAMICTAL [Suspect]
     Indication: BIPOLAR I DISORDER
     Dosage: 50MG PER DAY
     Route: 048
     Dates: start: 20111216, end: 20111221
  4. SODIUM VALPROATE [Suspect]
     Indication: BIPOLAR I DISORDER
     Route: 048
     Dates: end: 20111222
  5. SEPAZON [Concomitant]
     Indication: ANXIETY
     Route: 048
     Dates: end: 20111222
  6. MYSLEE [Concomitant]
     Indication: INSOMNIA
     Dosage: 10MG PER DAY
     Route: 048
     Dates: start: 20101112, end: 20111222

REACTIONS (10)
  - Stevens-Johnson syndrome [Recovered/Resolved]
  - Rash [Recovered/Resolved]
  - Drug eruption [Recovered/Resolved]
  - Erythema multiforme [Unknown]
  - Ocular hyperaemia [Unknown]
  - Erythema of eyelid [Unknown]
  - Lip erosion [Unknown]
  - Oral mucosa erosion [Unknown]
  - Vulval disorder [Unknown]
  - Generalised erythema [Unknown]
